FAERS Safety Report 24914353 (Version 1)
Quarter: 2025Q1

REPORT INFORMATION
  Report Type: Spontaneous
  Country: US (occurrence: US)
  Receive Date: 20250203
  Receipt Date: 20250203
  Transmission Date: 20250408
  Serious: Yes (Life-Threatening, Hospitalization, Other)
  Sender: GLAXOSMITHKLINE
  Company Number: US-GSK-US2023GSK091105

PATIENT

DRUGS (11)
  1. THEOPHYLLINE [Interacting]
     Active Substance: THEOPHYLLINE
     Indication: Asthma
     Dosage: 300 MG, QD
  2. ALBUTEROL [Interacting]
     Active Substance: ALBUTEROL
     Indication: Product used for unknown indication
  3. ALLOPURINOL [Interacting]
     Active Substance: ALLOPURINOL
     Indication: Product used for unknown indication
     Dosage: 300 MG, QD
  4. OMEPRAZOLE [Interacting]
     Active Substance: OMEPRAZOLE
     Indication: Product used for unknown indication
     Dosage: 40 MG, QD
  5. APIXABAN [Interacting]
     Active Substance: APIXABAN
     Indication: Product used for unknown indication
     Dosage: 5 MG, BID
  6. TRAZODONE [Interacting]
     Active Substance: TRAZODONE HYDROCHLORIDE
     Indication: Product used for unknown indication
     Dosage: 100 MG, BID
  7. OXYCODONE AND ACETAMINOPHEN [Interacting]
     Active Substance: ACETAMINOPHEN\OXYCODONE HYDROCHLORIDE
     Indication: Product used for unknown indication
  8. GABAPENTIN [Interacting]
     Active Substance: GABAPENTIN
     Indication: Product used for unknown indication
     Dosage: 300 MG, TID
  9. OXYBUTYNIN [Interacting]
     Active Substance: OXYBUTYNIN
     Indication: Product used for unknown indication
     Dosage: 5 MG, BID
  10. METOPROLOL TARTRATE [Interacting]
     Active Substance: METOPROLOL TARTRATE
     Indication: Product used for unknown indication
     Dosage: 50 MG, BID
  11. FULVESTRANT [Interacting]
     Active Substance: FULVESTRANT
     Indication: Product used for unknown indication
     Route: 030

REACTIONS (9)
  - Toxicity to various agents [Recovering/Resolving]
  - Drug interaction [Unknown]
  - Status epilepticus [Recovering/Resolving]
  - Mental status changes [Recovering/Resolving]
  - Atrial fibrillation [Recovering/Resolving]
  - Depressed level of consciousness [Recovering/Resolving]
  - Neurotoxicity [Recovering/Resolving]
  - Seizure [Recovering/Resolving]
  - Treatment noncompliance [Unknown]
